FAERS Safety Report 9565483 (Version 1)
Quarter: 2013Q3

REPORT INFORMATION
  Report Type: Spontaneous
  Country: FR (occurrence: FR)
  Receive Date: 20130930
  Receipt Date: 20130930
  Transmission Date: 20140515
  Serious: Yes (Hospitalization)
  Sender: FDA-Public Use
  Company Number: FR-PFIZER INC-2013274613

PATIENT
  Age: 89 Year
  Sex: Male

DRUGS (18)
  1. FRAGMINE [Suspect]
     Indication: THROMBOSIS PROPHYLAXIS
     Dosage: 1 DF, 1X/DAY
     Route: 058
     Dates: start: 20130713, end: 20130713
  2. TIENAM [Suspect]
     Indication: ESCHERICHIA INFECTION
     Dosage: 1 DF, 4X/DAY
     Route: 042
     Dates: start: 20130713, end: 20130719
  3. ZYLORIC [Suspect]
     Indication: GOUT
     Dosage: 200 MG, 1X/DAY
     Route: 048
     Dates: end: 20130712
  4. HEMIGOXINE NATIVELLE [Suspect]
     Indication: ATRIAL FIBRILLATION
     Dosage: 1 DF, 1X/DAY
     Route: 048
     Dates: end: 20130712
  5. CHIBRO-PROSCAR [Suspect]
     Indication: BENIGN PROSTATIC HYPERPLASIA
     Dosage: 5 MG, 1X/DAY
     Route: 048
     Dates: end: 20130712
  6. CEFTRIAXONE PANPHARMA [Suspect]
     Indication: URINARY TRACT INFECTION
     Dosage: 1 G, 1X/DAY
     Route: 042
     Dates: start: 20130707, end: 20130708
  7. AMIKACIN MYLAN [Suspect]
     Indication: URINARY TRACT INFECTION
     Dosage: UNK
     Route: 042
     Dates: start: 20130707, end: 20130708
  8. LASILIX FAIBLE [Suspect]
     Dosage: 20 MG, 1X/DAY
     Route: 048
     Dates: end: 20130712
  9. INEXIUM [Suspect]
     Dosage: 40 MG, 1X/DAY
     Route: 048
     Dates: end: 20130719
  10. PREVISCAN [Suspect]
     Dosage: 10 MG, 1X/DAY
     Route: 048
     Dates: end: 20130707
  11. KANOKAD [Suspect]
     Indication: SOMNOLENCE
     Dosage: UNK
     Route: 042
     Dates: start: 20130707, end: 20130707
  12. KANOKAD [Suspect]
     Indication: DISORIENTATION
  13. LEVOTHYROX [Concomitant]
     Dosage: 100 UG, 1X/DAY
     Route: 048
  14. PERFALGAN [Concomitant]
     Dosage: 1 G, DAILY
     Route: 042
     Dates: start: 20130712, end: 20130716
  15. INVANZ [Concomitant]
     Indication: URINARY TRACT INFECTION
     Dosage: 1 G, DAILY
     Route: 042
     Dates: start: 20130709, end: 20130712
  16. INVANZ [Concomitant]
     Dosage: UNK
     Dates: start: 20130719
  17. CORDARONE [Concomitant]
     Dosage: 1 DF, DAILY
     Route: 048
  18. TRIFLUCAN [Suspect]
     Dosage: 500 MG, 1X/DAY
     Route: 048
     Dates: start: 20130712, end: 20130717

REACTIONS (2)
  - Leukopenia [Recovered/Resolved]
  - Anaemia [Unknown]
